FAERS Safety Report 24463126 (Version 1)
Quarter: 2024Q4

REPORT INFORMATION
  Report Type: Report from Study
  Country: US (occurrence: US)
  Receive Date: 20241018
  Receipt Date: 20241018
  Transmission Date: 20250115
  Serious: No
  Sender: ROCHE
  Company Number: US-ROCHE-2788588

PATIENT
  Age: 66 Year
  Sex: Female
  Weight: 150.0 kg

DRUGS (24)
  1. XOLAIR [Suspect]
     Active Substance: OMALIZUMAB
     Indication: Asthma
     Dosage: DATE OF TREATMENT:  25/NOV/2019, 12/JUL/2021
     Route: 058
  2. XOLAIR [Suspect]
     Active Substance: OMALIZUMAB
     Indication: Asthma
  3. ALBUTEROL SULFATE [Concomitant]
     Active Substance: ALBUTEROL SULFATE
     Indication: Dyspnoea
  4. ARFORMOTEROL [Concomitant]
     Active Substance: ARFORMOTEROL
     Indication: Chronic obstructive pulmonary disease
  5. BENZONATATE [Concomitant]
     Active Substance: BENZONATATE
     Indication: Cough
  6. BUDESONIDE [Concomitant]
     Active Substance: BUDESONIDE
     Indication: Chronic obstructive pulmonary disease
  7. CALCIUM CARBONATE [Concomitant]
     Active Substance: CALCIUM CARBONATE
  8. VITAMIN D3 [Concomitant]
     Active Substance: CHOLECALCIFEROL
  9. EPINEPHRINE [Concomitant]
     Active Substance: EPINEPHRINE
     Indication: Asthma
  10. FLUCONAZOLE [Concomitant]
     Active Substance: FLUCONAZOLE
  11. FLUOXETINE [Concomitant]
     Active Substance: FLUOXETINE HYDROCHLORIDE
  12. FLUTICASONE PROPIONATE [Concomitant]
     Active Substance: FLUTICASONE PROPIONATE
  13. HYDROXYZINE HYDROCHLORIDE [Concomitant]
     Active Substance: HYDROXYZINE HYDROCHLORIDE
  14. INSULIN ASPART [Concomitant]
     Active Substance: INSULIN ASPART
  15. INSULIN DEGLUDEC [Concomitant]
     Active Substance: INSULIN DEGLUDEC
  16. LEVOTHYROXINE [Concomitant]
     Active Substance: LEVOTHYROXINE
  17. LIRAGLUTIDE [Concomitant]
     Active Substance: LIRAGLUTIDE
  18. LISINOPRIL [Concomitant]
     Active Substance: LISINOPRIL
  19. MELOXICAM [Concomitant]
     Active Substance: MELOXICAM
  20. MIRTAZAPINE [Concomitant]
     Active Substance: MIRTAZAPINE
  21. OMEPRAZOLE [Concomitant]
     Active Substance: OMEPRAZOLE
  22. QUETIAPINE [Concomitant]
     Active Substance: QUETIAPINE
  23. SIMVASTATIN [Concomitant]
     Active Substance: SIMVASTATIN
  24. TRIAMCINOLONE ACETONIDE [Concomitant]
     Active Substance: TRIAMCINOLONE ACETONIDE

REACTIONS (2)
  - Off label use [Unknown]
  - No adverse event [Unknown]
